FAERS Safety Report 9685040 (Version 3)
Quarter: 2013Q4

REPORT INFORMATION
  Report Type: Spontaneous
  Country: CA (occurrence: CA)
  Receive Date: 20131113
  Receipt Date: 20131220
  Transmission Date: 20140711
  Serious: Yes (Life-Threatening, Hospitalization, Other)
  Sender: FDA-Public Use
  Company Number: CA-JNJFOC-20131106000

PATIENT
  Age: 80 Year
  Sex: Male

DRUGS (7)
  1. XARELTO [Suspect]
     Indication: EMBOLISM VENOUS
     Route: 048
     Dates: start: 20130305, end: 20130313
  2. XARELTO [Suspect]
     Indication: DEEP VEIN THROMBOSIS
     Route: 048
     Dates: start: 20130305, end: 20130313
  3. XARELTO [Suspect]
     Indication: PULMONARY EMBOLISM
     Route: 048
     Dates: start: 20130305, end: 20130313
  4. HYDROCHLOROTHIAZIDE [Concomitant]
     Route: 065
  5. VALSARTAN [Concomitant]
     Route: 065
  6. ATORVASTATIN [Concomitant]
     Route: 065
  7. TOLTERODINE [Concomitant]
     Route: 065

REACTIONS (7)
  - Cardiac tamponade [Recovering/Resolving]
  - Activated partial thromboplastin time prolonged [Recovering/Resolving]
  - Blood pressure systolic inspiratory decreased [Recovering/Resolving]
  - Syncope [Recovering/Resolving]
  - Pericardial effusion [Recovering/Resolving]
  - Renal failure acute [Recovering/Resolving]
  - International normalised ratio increased [Recovering/Resolving]
